FAERS Safety Report 12928616 (Version 3)
Quarter: 2016Q4

REPORT INFORMATION
  Report Type: Spontaneous
  Country: BR (occurrence: BR)
  Receive Date: 20161110
  Receipt Date: 20161129
  Transmission Date: 20170207
  Serious: Yes (Hospitalization, Other)
  Sender: FDA-Public Use
  Company Number: BR-TORRENT-00003676

PATIENT
  Age: 45 Year
  Sex: Female
  Weight: 49 kg

DRUGS (3)
  1. BRAND NAME UNSPECIFY (DIVALPROATE SODIUM) [Suspect]
     Active Substance: DIVALPROEX SODIUM
     Indication: SEIZURE
     Dosage: UNK/ ORAL
     Route: 048
     Dates: end: 20161001
  2. LAMITOR [Suspect]
     Active Substance: LAMOTRIGINE
     Indication: SEIZURE
     Dosage: LAMITOR 25 MG FOUR TABLET DAILY/ ORAL
     Route: 048
     Dates: start: 201607, end: 20161001
  3. MAREVAN [Concomitant]
     Active Substance: WARFARIN SODIUM
     Indication: CEREBRAL THROMBOSIS
     Dosage: 1 TABLET DAILY/ ORAL
     Route: 048
     Dates: start: 201606

REACTIONS (1)
  - Drug reaction with eosinophilia and systemic symptoms [Recovering/Resolving]

NARRATIVE: CASE EVENT DATE: 201609
